FAERS Safety Report 9127291 (Version 2)
Quarter: 2013Q2

REPORT INFORMATION
  Report Type: Spontaneous
  Country: GB (occurrence: GB)
  Receive Date: 20130122
  Receipt Date: 20130621
  Transmission Date: 20140414
  Serious: Yes (Hospitalization)
  Sender: FDA-Public Use
  Company Number: GB-BAUSCH-BL-2013-000208

PATIENT
  Age: 16 Year
  Sex: Female
  Weight: 38.8 kg

DRUGS (62)
  1. DEXAMETHASONE [Suspect]
     Indication: PROPHYLAXIS OF NAUSEA AND VOMITING
     Dosage: 1/1 DAY
     Dates: start: 20120921, end: 20120924
  2. APREPITANT [Suspect]
     Indication: PROPHYLAXIS OF NAUSEA AND VOMITING
     Dosage: 1/1 DAYS
     Route: 048
     Dates: start: 20121107, end: 20121107
  3. APREPITANT [Suspect]
     Dosage: 1 /1DAYS
     Route: 048
     Dates: start: 20121108, end: 20121108
  4. APREPITANT [Suspect]
     Dosage: 1/1 DAYS
     Route: 048
     Dates: start: 20121109, end: 20121109
  5. APREPITANT [Suspect]
     Dosage: 1/1 DAYS
     Route: 048
     Dates: start: 20121017, end: 20121017
  6. APREPITANT [Suspect]
     Dosage: 1/1 DAYS
     Route: 048
     Dates: start: 20121018, end: 20121018
  7. APREPITANT [Suspect]
     Dosage: 1/1 DAYS
     Route: 048
     Dates: start: 20121019, end: 20121019
  8. APREPITANT [Suspect]
     Dosage: 1 /1 DAYS
     Route: 048
     Dates: start: 20120921, end: 20120921
  9. APREPITANT [Suspect]
     Dosage: 1 /1 DAYS
     Route: 048
     Dates: start: 20120922, end: 20120922
  10. APREPITANT [Suspect]
     Dosage: 1 /1 DAYS
     Route: 048
     Dates: start: 20120923, end: 20120923
  11. APREPITANT [Suspect]
     Dosage: 1 /1DAYS
     Route: 048
     Dates: start: 20121128, end: 20121128
  12. APREPITANT [Suspect]
     Dosage: 1 /1 DAYS
     Route: 048
     Dates: start: 20121129, end: 20121129
  13. APREPITANT [Suspect]
     Dosage: 1 /1DAYS
     Route: 048
     Dates: start: 20121130, end: 20121130
  14. DOXORUBICIN [Suspect]
     Indication: CHEMOTHERAPY
     Dosage: 1/ 1 DAYS
     Dates: start: 20121017, end: 20121018
  15. DOXORUBICIN [Suspect]
     Dosage: 1/1 DAY
     Dates: start: 20120822, end: 20120923
  16. IFOSFAMIDE [Suspect]
     Indication: NEOPLASM MALIGNANT
     Dosage: 1/1DAY
     Dates: start: 20121017, end: 20121019
  17. IFOSFAMIDE [Suspect]
     Indication: CHEMOTHERAPY
     Dosage: 1/1DAY
  18. IFOSFAMIDE [Suspect]
     Indication: NEOPLASM MALIGNANT
     Dosage: 1/1DAY
     Dates: start: 20120921, end: 20120923
  19. IFOSFAMIDE [Suspect]
     Indication: CHEMOTHERAPY
     Dosage: 1/1/DAY
  20. ONDANSETRON [Suspect]
     Indication: PROPHYLAXIS OF NAUSEA AND VOMITING
     Dosage: 1 DAYS
     Dates: start: 20121007, end: 20121007
  21. ONDANSETRON [Suspect]
     Dosage: 1/1DAY
     Route: 065
     Dates: start: 20121017, end: 20121017
  22. ONDANSETRON [Suspect]
     Dosage: 1 /1DAYS
     Route: 065
     Dates: start: 20121018, end: 20121018
  23. ONDANSETRON [Suspect]
     Dosage: 1 DAYS
     Route: 065
     Dates: start: 20121019, end: 20121019
  24. ONDANSETRON [Suspect]
     Dosage: 1 /1 DAYS
     Dates: start: 20120921, end: 20120924
  25. ONDANSETRON [Suspect]
     Dosage: 1/1 AS NEEDED
     Dates: start: 20120924, end: 20120924
  26. ONDANSETRON [Suspect]
     Dosage: 1/1 AS NEEDED
     Route: 065
     Dates: start: 20120925, end: 20120925
  27. ONDANSETRON [Suspect]
     Dosage: 2/1 DAYS
     Route: 065
     Dates: start: 20120926, end: 20120927
  28. ONDANSETRON [Suspect]
     Dosage: 1 /1DAYS
     Route: 065
     Dates: start: 20120927, end: 20120927
  29. ONDANSETRON [Suspect]
     Dosage: 1 /1DAYS
     Route: 065
  30. CHLORHEXIDINE [Concomitant]
     Indication: ANAESTHESIA
     Route: 061
     Dates: start: 20121006, end: 20121016
  31. CIPROFLOXACIN [Concomitant]
     Indication: INFECTION
     Dosage: 3/1 DAY
     Route: 048
     Dates: start: 20121030, end: 201211
  32. CIPROFLOXACIN [Concomitant]
     Indication: MUCOSAL INFLAMMATION
     Dosage: 3/ 1 DAYS
     Route: 048
     Dates: start: 20121030, end: 201211
  33. AMOXICILLIN SODIUM/CLAVULANATE POTASSIUM [Concomitant]
     Indication: INFECTION
     Dosage: 3/ 1 DAYS
     Route: 048
     Dates: start: 20121030, end: 201211
  34. AMOXICILLIN SODIUM/CLAVULANATE POTASSIUM [Concomitant]
     Indication: MUCOSAL INFLAMMATION
     Dosage: 3/1/DAY
     Route: 048
  35. CODEINE PHOSPHATE [Concomitant]
     Indication: PAIN
     Dosage: 4/ 1DAYS
     Route: 048
     Dates: start: 20120830
  36. CODEINE PHOSPHATE [Concomitant]
     Dosage: 1/1DAY
     Route: 048
     Dates: start: 20121005, end: 20121005
  37. CO-TRIMOXAZOLE [Concomitant]
     Route: 065
     Dates: start: 201209
  38. CYCLIZINE [Concomitant]
     Indication: ANTIEMETIC SUPPORTIVE CARE
     Dosage: 1/1 DAY
     Route: 048
     Dates: start: 20121017, end: 20121017
  39. CYCLIZINE [Concomitant]
     Indication: NAUSEA
     Dosage: 3/1 DAYS
     Route: 048
     Dates: start: 20120923, end: 20120923
  40. GLUCOSE [Concomitant]
     Route: 065
     Dates: start: 20121017, end: 20121019
  41. FENTANYL [Concomitant]
     Indication: PAIN
     Dosage: 1/1 AS NEEDED
     Route: 065
     Dates: start: 20121030
  42. FLUCLOXACILLIN [Concomitant]
     Indication: PERIORBITAL CELLULITIS
     Dosage: 4/ 1 DAYS
     Route: 048
     Dates: start: 20121010, end: 20121019
  43. HEPARIN [Concomitant]
     Indication: ANTICOAGULANT THERAPY
     Dosage: 1 /1DAYS
     Dates: start: 20120914
  44. HEPARIN [Concomitant]
  45. HYPROMELLOSE [Concomitant]
     Route: 047
     Dates: start: 20121019
  46. LIDOCAINE [Concomitant]
     Indication: ANAESTHESIA
     Route: 061
     Dates: start: 20121006, end: 20121016
  47. MESNA [Concomitant]
     Indication: PROPHYLAXIS
     Dates: start: 20121017, end: 20121019
  48. MESNA [Concomitant]
     Route: 065
  49. MESNA [Concomitant]
     Dosage: 1/1DAYS
     Dates: start: 20120921, end: 20120924
  50. SODIUM BICARBONATE/POTASSIUM CHLORIDE/MACROGOL [Concomitant]
     Indication: CONSTIPATION
     Route: 048
     Dates: start: 20121007
  51. NORETHISTERONE [Concomitant]
     Indication: MENSTRUAL DISORDER
     Dosage: 3/1DAYS
     Route: 048
     Dates: start: 20120903
  52. OXYCODONE [Concomitant]
     Indication: PAIN
     Dosage: 2/ 1DAYS
     Route: 048
     Dates: start: 20121122, end: 20121201
  53. OXYCODONE [Concomitant]
     Dates: start: 20121030, end: 20121030
  54. MACROGOL [Concomitant]
     Indication: CONSTIPATION
     Route: 048
     Dates: start: 20120830, end: 201209
  55. TINZAPARIN [Concomitant]
     Route: 065
     Dates: start: 20121012
  56. CODEINE [Concomitant]
     Indication: ANALGESIC THERAPY
     Dosage: 1/1DAYS
     Route: 048
     Dates: start: 20121005, end: 20121005
  57. PARACETAMOL [Concomitant]
     Indication: ANALGESIC THERAPY
     Dosage: 1/1DAY
     Route: 048
     Dates: start: 20121005, end: 20121006
  58. RED BLOOD CELLS [Concomitant]
     Indication: HAEMOGLOBIN DECREASED
     Dates: start: 20120924, end: 20120924
  59. TEICOPLANIN [Concomitant]
     Indication: DEVICE RELATED INFECTION
     Dosage: 1/1DAYS
     Dates: start: 20120915, end: 20120920
  60. COLOSTRUM [Concomitant]
     Route: 065
     Dates: start: 201209
  61. HYOSCINE BUTYLBROMIDE [Concomitant]
     Route: 065
     Dates: start: 20121005, end: 20121008
  62. CALCIUM CARBONATE [Concomitant]
     Route: 065
     Dates: start: 20121005, end: 20121009

REACTIONS (12)
  - Abdominal pain [Recovered/Resolved]
  - Constipation [Recovered/Resolved]
  - Off label use [Unknown]
  - Febrile neutropenia [Recovered/Resolved]
  - Mucosal inflammation [Recovered/Resolved]
  - Neutropenia [Recovered/Resolved]
  - Medical device complication [Unknown]
  - Haemoglobin decreased [Not Recovered/Not Resolved]
  - Diarrhoea [Recovered/Resolved]
  - Periorbital cellulitis [Recovered/Resolved]
  - Vena cava thrombosis [Not Recovered/Not Resolved]
  - Medical device complication [Recovered/Resolved]
